FAERS Safety Report 15377560 (Version 1)
Quarter: 2018Q3

REPORT INFORMATION
  Report Type: Spontaneous
  Country: CA (occurrence: CA)
  Receive Date: 20180913
  Receipt Date: 20180913
  Transmission Date: 20181010
  Serious: Yes (Disabling, Other)
  Sender: FDA-Public Use
  Company Number: CA-UCBSA-2018040541

PATIENT
  Age: 56 Year
  Sex: Female

DRUGS (2)
  1. TEMODAL [Suspect]
     Active Substance: TEMOZOLOMIDE
     Indication: OLIGODENDROGLIOMA
     Dosage: 100 MG, ONCE DAILY (QD)
     Route: 048
  2. KEPPRA [Suspect]
     Active Substance: LEVETIRACETAM
     Indication: PRODUCT USED FOR UNKNOWN INDICATION
     Dosage: 750 MG, 2X/DAY (BID)

REACTIONS (9)
  - Disturbance in attention [Unknown]
  - Herpes zoster [Unknown]
  - Cystitis [Unknown]
  - Hypoaesthesia [Unknown]
  - Influenza [Unknown]
  - Pruritus [Unknown]
  - Lung infection [Unknown]
  - Fatigue [Unknown]
  - Memory impairment [Unknown]
